FAERS Safety Report 19380599 (Version 1)
Quarter: 2021Q2

REPORT INFORMATION
  Report Type: Spontaneous
  Country: US (occurrence: US)
  Receive Date: 20210607
  Receipt Date: 20210607
  Transmission Date: 20210717
  Serious: Yes (Other)
  Sender: FDA-Public Use
  Company Number: US-STRIDES ARCOLAB LIMITED-2021SP006164

PATIENT
  Age: 53 Year
  Sex: Female
  Weight: 81.63 kg

DRUGS (4)
  1. ACARBOSE. [Suspect]
     Active Substance: ACARBOSE
     Dosage: 1 TABLETS (25 MILLIGRAM TABLET)
     Route: 048
     Dates: start: 20210529
  2. ACARBOSE. [Suspect]
     Active Substance: ACARBOSE
     Indication: DIABETES MELLITUS
     Dosage: 3 TABLETS A DAY (01 TABLET AFTER EVERY MEAL) (50 MG TABLET)
     Route: 048
     Dates: start: 20210515, end: 20210520
  3. REPAGLINIDE. [Concomitant]
     Active Substance: REPAGLINIDE
     Indication: PRODUCT USED FOR UNKNOWN INDICATION
     Dosage: 1 TABLETS, TID (1 TABLET AFTER EVERY MEAL)
     Route: 065
  4. TALTZ [Concomitant]
     Active Substance: IXEKIZUMAB
     Indication: PRODUCT USED FOR UNKNOWN INDICATION
     Dosage: UNK
     Route: 065

REACTIONS (1)
  - Anal incontinence [Recovered/Resolved]

NARRATIVE: CASE EVENT DATE: 202105
